FAERS Safety Report 4587905-6 (Version None)
Quarter: 2005Q1

REPORT INFORMATION
  Report Type: 
  Country: None (occurrence: None)
  Receive Date: 20050219
  Receipt Date: 20050210
  Transmission Date: 20050727
  Serious: Yes (Other)
  Sender: FDA-Public Use
  Company Number: PHBS2005GR02279

PATIENT
  Age: 63 Year
  Sex: Male

DRUGS (6)
  1. NITRATES [Suspect]
  2. ASPIRIN [Concomitant]
  3. ISOSORBIDE MONONITRATE [Concomitant]
     Dosage: 120 MG, QD
     Route: 048
  4. NIFEDIPINE [Suspect]
     Dosage: 60 MG, QD
  5. METOPROLOL [Suspect]
     Indication: CHEST PAIN
     Dosage: 50 MG, QD
  6. METOPROLOL [Suspect]
     Dosage: 200 MG, QD

REACTIONS (7)
  - ATRIOVENTRICULAR BLOCK [None]
  - CHEST PAIN [None]
  - DRUG WITHDRAWAL SYNDROME [None]
  - ELECTROCARDIOGRAM ST SEGMENT ELEVATION [None]
  - HEART RATE IRREGULAR [None]
  - PRINZMETAL ANGINA [None]
  - SYNCOPE [None]
